FAERS Safety Report 17430308 (Version 1)
Quarter: 2020Q1

REPORT INFORMATION
  Report Type: Spontaneous
  Country: US (occurrence: US)
  Receive Date: 20200218
  Receipt Date: 20200218
  Transmission Date: 20200409
  Serious: No
  Sender: FDA-Public Use
  Company Number: US-PFIZER INC-2020070004

PATIENT
  Age: 78 Year
  Sex: Female
  Weight: 67.13 kg

DRUGS (1)
  1. VORICONAZOLE. [Suspect]
     Active Substance: VORICONAZOLE
     Indication: PNEUMONIA FUNGAL
     Dosage: 200 MG, 2X/DAY (200MG TABLET BY MOUTH TWICE A DAY)
     Route: 048

REACTIONS (1)
  - Weight decreased [Unknown]
